FAERS Safety Report 8547523-1 (Version None)
Quarter: 2012Q3

REPORT INFORMATION
  Report Type: 
  Country: None (occurrence: None)
  Receive Date: 20120727
  Receipt Date: 20120425
  Transmission Date: 20120928
  Serious: No
  Sender: FDA-Public Use
  Company Number: US-ASTRAZENECA-2012SE20992

PATIENT
  Age: 59 Year
  Sex: Male
  Weight: 90.7 kg

DRUGS (7)
  1. CYMBALTA [Concomitant]
     Indication: ANXIETY
  2. DEPAKOTE [Concomitant]
  3. SEROQUEL [Suspect]
     Indication: SCHIZOPHRENIA
     Route: 048
     Dates: start: 20060101
  4. SEROQUEL [Suspect]
     Indication: BIPOLAR DISORDER
     Route: 048
     Dates: start: 20060101
  5. CYMBALTA [Concomitant]
     Indication: DEPRESSION
  6. SEROQUEL [Suspect]
     Indication: SLEEP DISORDER
     Route: 048
     Dates: start: 20060101
  7. SEROQUEL [Suspect]
     Indication: ANGER
     Route: 048
     Dates: start: 20060101

REACTIONS (3)
  - IRRITABILITY [None]
  - MENTAL DISORDER [None]
  - INTENTIONAL DRUG MISUSE [None]
